FAERS Safety Report 6236230-6 (Version None)
Quarter: 2009Q2

REPORT INFORMATION
  Report Type: 
  Country: None (occurrence: None)
  Receive Date: 20090616
  Receipt Date: 20090604
  Transmission Date: 20091009
  Serious: Yes (Death)
  Sender: FDA-Public Use
  Company Number: 2009AL002554

PATIENT
  Age: 86 Year
  Sex: Female

DRUGS (7)
  1. DIGOXIN [Suspect]
     Dosage: PO
     Route: 048
     Dates: start: 20080328, end: 20080421
  2. ASPIRIN [Concomitant]
  3. PLAVIX [Concomitant]
  4. ARANESP [Concomitant]
  5. PREVACID [Concomitant]
  6. ZYVOX [Concomitant]
  7. DIFLUCAN [Concomitant]

REACTIONS (12)
  - CANDIDURIA [None]
  - CARDIOMYOPATHY [None]
  - DEHYDRATION [None]
  - DIARRHOEA [None]
  - ECONOMIC PROBLEM [None]
  - ENTEROCOCCAL INFECTION [None]
  - HYPOTENSION [None]
  - INJURY [None]
  - RENAL FAILURE CHRONIC [None]
  - STREPTOCOCCAL BACTERAEMIA [None]
  - UNEVALUABLE EVENT [None]
  - VOMITING [None]
